FAERS Safety Report 9261165 (Version 1)
Quarter: 2013Q2

REPORT INFORMATION
  Report Type: Spontaneous
  Country: US (occurrence: US)
  Receive Date: 20130429
  Receipt Date: 20130429
  Transmission Date: 20140414
  Serious: No
  Sender: FDA-Public Use
  Company Number: US-AMGEN-USASP2013009272

PATIENT
  Age: 53 Year
  Sex: Female

DRUGS (8)
  1. SENSIPAR [Suspect]
     Indication: SECONDARY HYPERTHYROIDISM
     Dosage: 30 MG, QD
  2. OMEPRAZOLE [Concomitant]
  3. LEVOTHYROXINE [Concomitant]
  4. MAGNESIUM [Concomitant]
  5. FOSRENOL [Concomitant]
  6. GABAPENTIN [Concomitant]
  7. ZOFRAN                             /00955301/ [Concomitant]
  8. HYDROCODONE [Concomitant]

REACTIONS (3)
  - Laboratory test abnormal [Unknown]
  - Vomiting [Unknown]
  - Nausea [Unknown]
